FAERS Safety Report 4463079-7 (Version None)
Quarter: 2004Q3

REPORT INFORMATION
  Report Type: 
  Country: None (occurrence: None)
  Receive Date: 20040928
  Receipt Date: 20040913
  Transmission Date: 20050211
  Serious: Yes (Hospitalization)
  Sender: FDA-Public Use
  Company Number: 209036

PATIENT
  Age: 75 Year
  Sex: Female

DRUGS (7)
  1. AVASTIN [Suspect]
     Indication: COLON CANCER
     Dosage: Q2W, INTRAVENOUS
     Route: 042
     Dates: start: 20040101
  2. 5-FU (FLUORORACIL) [Concomitant]
  3. LEUCOVORIN CALCIUM [Concomitant]
  4. LIPITOR [Concomitant]
  5. VASOTEC [Concomitant]
  6. ASPIRIN [Concomitant]
  7. AMITIPTYLINE (AMITRIPTYLINE HYDROCHLORIDE) [Concomitant]

REACTIONS (9)
  - ABNORMAL BEHAVIOUR [None]
  - ASTHENIA [None]
  - ATAXIA [None]
  - CONFUSIONAL STATE [None]
  - DEMYELINATION [None]
  - DYSARTHRIA [None]
  - FALL [None]
  - MENTAL STATUS CHANGES [None]
  - PROGRESSIVE MULTIFOCAL LEUKOENCEPHALOPATHY [None]
